FAERS Safety Report 4305178-6 (Version None)
Quarter: 2004Q1

REPORT INFORMATION
  Report Type: 
  Country: None (occurrence: None)
  Receive Date: 20040225
  Receipt Date: 20040225
  Transmission Date: 20041129
  Serious: Yes (Hospitalization)
  Sender: FDA-Public Use
  Company Number: None

PATIENT
  Age: 72 Year
  Sex: Female

DRUGS (9)
  1. GENTAMICIN [Suspect]
     Indication: PERIANAL ABSCESS
     Dosage: 350 MG IV Q24 H
     Route: 042
  2. FUROSEMIDE [Concomitant]
  3. CEFEPIME [Concomitant]
  4. HEPARIN [Concomitant]
  5. LANSOPRAZOLE [Concomitant]
  6. NYSTATIN [Concomitant]
  7. SIMVASTATIN [Concomitant]
  8. TRIAMCINDONE [Concomitant]
  9. VANCOMYCIN [Concomitant]

REACTIONS (4)
  - HYPERTENSION [None]
  - HYPOTENSION [None]
  - OLIGURIA [None]
  - RENAL FAILURE ACUTE [None]
